FAERS Safety Report 7121372-3 (Version None)
Quarter: 2010Q4

REPORT INFORMATION
  Report Type: 
  Country: None (occurrence: None)
  Receive Date: 20101124
  Receipt Date: 20101115
  Transmission Date: 20110411
  Serious: Yes (Hospitalization, Other)
  Sender: FDA-Public Use
  Company Number: AT-ELI_LILLY_AND_COMPANY-AT201011003810

PATIENT
  Sex: Female
  Weight: 80 kg

DRUGS (8)
  1. CYMBALTA [Suspect]
     Indication: DEPRESSION
     Dosage: 30 MG, DAILY (1/D)
     Dates: start: 20100917, end: 20101004
  2. ADALAT [Concomitant]
     Indication: HYPERTENSION
     Dosage: UNK, UNK
  3. EUTHYROX [Concomitant]
     Indication: HYPOTHYROIDISM
     Dosage: 25 MG, DAILY (1/D)
  4. TRAZODONE HCL [Concomitant]
     Indication: DEPRESSION
     Dosage: 0.33 D/F, DAILY (1/D)
  5. TRAZODONE HCL [Concomitant]
     Dosage: 0.77 D/F, DAILY (1/D)
  6. ASPIRIN [Concomitant]
     Indication: PERIPHERAL ARTERIAL OCCLUSIVE DISEASE
     Dosage: 100 MG, DAILY (1/D)
  7. CO-DILATREND [Concomitant]
     Indication: HYPERTENSION
     Dosage: 7.5 MG, DAILY (1/D)
  8. STALEVO 100 [Concomitant]
     Indication: PARKINSON'S DISEASE
     Dosage: 3 D/F, DAILY (1/D)

REACTIONS (3)
  - ALANINE AMINOTRANSFERASE INCREASED [None]
  - ASPARTATE AMINOTRANSFERASE INCREASED [None]
  - GAMMA-GLUTAMYLTRANSFERASE INCREASED [None]
